FAERS Safety Report 18303847 (Version 6)
Quarter: 2020Q4

REPORT INFORMATION
  Report Type: Report from Study
  Country: US (occurrence: US)
  Receive Date: 20200923
  Receipt Date: 20201211
  Transmission Date: 20210113
  Serious: Yes (Other)
  Sender: FDA-Public Use
  Company Number: NVSC2020US254094

PATIENT
  Age: 47 Year
  Sex: Female

DRUGS (1)
  1. ENTRESTO [Suspect]
     Active Substance: SACUBITRIL\VALSARTAN
     Indication: PRODUCT USED FOR UNKNOWN INDICATION
     Dosage: UNK UNK, BID
     Route: 048
     Dates: start: 201904

REACTIONS (11)
  - Cardiac failure [Unknown]
  - Headache [Unknown]
  - Arthritis [Unknown]
  - Peripheral swelling [Unknown]
  - Weight decreased [Unknown]
  - Product dose omission issue [Unknown]
  - Decreased activity [Unknown]
  - Dyspnoea [Unknown]
  - Hepatomegaly [Unknown]
  - Back pain [Unknown]
  - Pain in extremity [Unknown]
